FAERS Safety Report 7762811 (Version 3)
Quarter: 2018Q4

REPORT INFORMATION
  Report Type: Spontaneous
  Country: DE (occurrence: DE)
  Receive Date: 20110117
  Receipt Date: 20181221
  Transmission Date: 20190205
  Serious: Yes (Hospitalization, Other)
  Sender: FDA-Public Use
  Company Number: PHHY2011DE00592

PATIENT
  Age: 23 Year
  Sex: Male
  Weight: 65 kg

DRUGS (4)
  1. CABOZANTINIB [Concomitant]
     Active Substance: CABOZANTINIB
     Indication: THYROID CANCER
     Dosage: UNK
     Route: 065
  2. ZOMETA [Suspect]
     Active Substance: ZOLEDRONIC ACID
     Dosage: UNK
     Route: 041
     Dates: start: 20101215
  3. ZOMETA [Suspect]
     Active Substance: ZOLEDRONIC ACID
     Indication: METASTASES TO BONE
     Dosage: 4 MG, BID
     Route: 041
  4. RAMIPRIL. [Concomitant]
     Active Substance: RAMIPRIL
     Dosage: UNK

REACTIONS (12)
  - Proteinuria [Unknown]
  - Haemolytic uraemic syndrome [Not Recovered/Not Resolved]
  - Nausea [Unknown]
  - Haemolysis [Not Recovered/Not Resolved]
  - Thrombotic microangiopathy [Unknown]
  - Haemolytic anaemia [Recovering/Resolving]
  - Hypocalcaemia [Not Recovered/Not Resolved]
  - Thrombocytopenia [Recovering/Resolving]
  - Hypoproteinaemia [Unknown]
  - Hyperkalaemia [Unknown]
  - Vomiting [Unknown]
  - Nephrotic syndrome [Not Recovered/Not Resolved]

NARRATIVE: CASE EVENT DATE: 20101222
